FAERS Safety Report 5327876-8 (Version None)
Quarter: 2007Q2

REPORT INFORMATION
  Report Type: 
  Country: None (occurrence: None)
  Receive Date: 20070517
  Receipt Date: 20070507
  Transmission Date: 20071010
  Serious: Yes (Hospitalization, Other)
  Sender: FDA-Public Use
  Company Number: US-PFIZER INC-2006058578

PATIENT
  Sex: Male
  Weight: 83.9 kg

DRUGS (12)
  1. NEURONTIN [Suspect]
     Indication: PAIN
     Route: 048
  2. MORPHINE [Suspect]
     Indication: PAIN
  3. HYDROCODONE BITARTRATE [Concomitant]
  4. VALIUM [Concomitant]
  5. SOMA [Concomitant]
  6. CELEBREX [Concomitant]
     Indication: PAIN
  7. ALBUTEROL [Concomitant]
     Indication: ASTHMA
  8. SEREVENT [Concomitant]
  9. OMEPRAZOLE [Concomitant]
  10. RANITIDINE [Concomitant]
  11. IRBESARTAN [Concomitant]
     Indication: HYPERTENSION
  12. LORTAB [Concomitant]

REACTIONS (11)
  - ASTHMA [None]
  - COMA [None]
  - CONFUSIONAL STATE [None]
  - DRUG INEFFECTIVE [None]
  - HALLUCINATION [None]
  - LETHARGY [None]
  - MULTIPLE DRUG OVERDOSE [None]
  - PNEUMONIA ASPIRATION [None]
  - RESPIRATORY FAILURE [None]
  - SUICIDE ATTEMPT [None]
  - VOMITING [None]
